FAERS Safety Report 25192325 (Version 3)
Quarter: 2025Q2

REPORT INFORMATION
  Report Type: Spontaneous
  Country: CN (occurrence: CN)
  Receive Date: 20250414
  Receipt Date: 20250415
  Transmission Date: 20250717
  Serious: Yes (Other)
  Sender: GE HEALTHCARE
  Company Number: CN-GE HEALTHCARE-2025CSU004440

PATIENT
  Age: 82 Year
  Sex: Female
  Weight: 60 kg

DRUGS (2)
  1. VISIPAQUE [Suspect]
     Active Substance: IODIXANOL
     Indication: Venogram
     Route: 042
     Dates: start: 20250321, end: 20250321
  2. VISIPAQUE [Suspect]
     Active Substance: IODIXANOL
     Indication: Angiogram

REACTIONS (4)
  - Tension [Recovering/Resolving]
  - Heart rate abnormal [Recovering/Resolving]
  - Blood pressure increased [Recovering/Resolving]
  - Contrast media allergy [Recovering/Resolving]

NARRATIVE: CASE EVENT DATE: 20250321
